FAERS Safety Report 26126546 (Version 2)
Quarter: 2025Q4

REPORT INFORMATION
  Report Type: Report from Study
  Country: EU (occurrence: EU)
  Receive Date: 20251205
  Receipt Date: 20251221
  Transmission Date: 20260118
  Serious: Yes (Hospitalization)
  Sender: KYOWA
  Company Number: EU-KYOWAKIRIN-2025KK003125

PATIENT

DRUGS (33)
  1. MOGAMULIZUMAB [Suspect]
     Active Substance: MOGAMULIZUMAB
     Indication: Cutaneous T-cell lymphoma stage I
     Dosage: 140 MG, (1 MG/KG, CYCLE 7 DAY 1)
     Route: 065
     Dates: start: 20250102
  2. MOGAMULIZUMAB [Suspect]
     Active Substance: MOGAMULIZUMAB
     Dosage: 133 MG, (1 MG/KG, CYCLE 1 DAY 1)
     Route: 065
     Dates: start: 20240711
  3. MOGAMULIZUMAB [Suspect]
     Active Substance: MOGAMULIZUMAB
     Dosage: 133 MG, (1 MG/KG, CYCLE 1 DAY 8)
     Route: 065
     Dates: start: 20240718
  4. MOGAMULIZUMAB [Suspect]
     Active Substance: MOGAMULIZUMAB
     Dosage: 133 MG, (1 MG/KG, CYCLE 1 DAY 15)
     Route: 065
     Dates: start: 20240725
  5. MOGAMULIZUMAB [Suspect]
     Active Substance: MOGAMULIZUMAB
     Dosage: 133 MG, (1 MG/KG, CYCLE 1 DAY 22)
     Route: 065
     Dates: start: 20240801
  6. MOGAMULIZUMAB [Suspect]
     Active Substance: MOGAMULIZUMAB
     Dosage: 133 MG, (1 MG/KG, CYCLE 2 DAY 1)
     Route: 065
     Dates: start: 20240808
  7. MOGAMULIZUMAB [Suspect]
     Active Substance: MOGAMULIZUMAB
     Dosage: 133 MG, (1 MG/KG, CYCLE 2 DAY 15)
     Route: 065
     Dates: start: 20240822
  8. MOGAMULIZUMAB [Suspect]
     Active Substance: MOGAMULIZUMAB
     Dosage: 133 MG, (1 MG/KG, CYCLE 3 DAY 1)
     Route: 065
     Dates: start: 20240905
  9. MOGAMULIZUMAB [Suspect]
     Active Substance: MOGAMULIZUMAB
     Dosage: 133 MG, (1 MG/KG, CYCLE 3 DAY 15)
     Route: 065
     Dates: start: 20240919
  10. MOGAMULIZUMAB [Suspect]
     Active Substance: MOGAMULIZUMAB
     Dosage: 133 MG, (1 MG/KG, CYCLE 4 DAY 1)
     Route: 065
     Dates: start: 20241007
  11. MOGAMULIZUMAB [Suspect]
     Active Substance: MOGAMULIZUMAB
     Dosage: 133 MG, (1 MG/KG, CYCLE 4 DAY 15)
     Route: 065
     Dates: start: 20241024
  12. MOGAMULIZUMAB [Suspect]
     Active Substance: MOGAMULIZUMAB
     Dosage: 133 MG, (1 MG/KG, CYCLE 5 DAY 1)
     Route: 065
     Dates: start: 20241107
  13. MOGAMULIZUMAB [Suspect]
     Active Substance: MOGAMULIZUMAB
     Dosage: 133 MG, (1 MG/KG, CYCLE 5 DAY 15)
     Route: 065
     Dates: start: 20241121
  14. MOGAMULIZUMAB [Suspect]
     Active Substance: MOGAMULIZUMAB
     Dosage: 133 MG, (1 MG/KG, CYCLE 6 DAY 1)
     Route: 065
     Dates: start: 20241205
  15. MOGAMULIZUMAB [Suspect]
     Active Substance: MOGAMULIZUMAB
     Dosage: 133 MG, (1 MG/KG, CYCLE 6 DAY 15)
     Route: 065
     Dates: start: 20241219
  16. MOGAMULIZUMAB [Suspect]
     Active Substance: MOGAMULIZUMAB
     Dosage: 140 MG, (1 MG/KG, CYCLE 7 DAY 15)
     Route: 065
     Dates: start: 20250116
  17. MOGAMULIZUMAB [Suspect]
     Active Substance: MOGAMULIZUMAB
     Dosage: TREATMENT BREAK 0 MG/KG (CYCLE 8 DAY 1)
     Route: 065
     Dates: start: 20250130
  18. MOGAMULIZUMAB [Suspect]
     Active Substance: MOGAMULIZUMAB
     Dosage: TREATMENT BREAK 0 MG/KG (CYCLE 8 DAY 15)
     Route: 065
  19. MOMETASONE FUROATE [Concomitant]
     Active Substance: MOMETASONE FUROATE
     Indication: Cutaneous T-cell lymphoma
     Dosage: UNK, QD (ONCE DAILY)
     Route: 065
     Dates: start: 202404
  20. MECHLORETHAMINE HYDROCHLORIDE [Concomitant]
     Active Substance: MECHLORETHAMINE HYDROCHLORIDE
     Indication: Cutaneous T-cell lymphoma
     Dosage: UNK, 3 TIMES PER WEEK
     Route: 065
     Dates: start: 202404
  21. ACETAMINOPHEN [Concomitant]
     Active Substance: ACETAMINOPHEN
     Indication: Prophylaxis
     Dosage: 1000 MG, BEFORE MOGA
     Route: 042
     Dates: start: 20240711
  22. CLEMASTINE FUMARATE [Concomitant]
     Active Substance: CLEMASTINE FUMARATE
     Indication: Prophylaxis
     Dosage: 2 MG, BEFORE MOGA (TAVEGIL INJECTABLES 2MG 2ML)
     Route: 065
     Dates: start: 20240711
  23. ASPIRIN [Concomitant]
     Active Substance: ASPIRIN
     Indication: Product used for unknown indication
     Dosage: 100 MG, QD
     Route: 065
  24. ALLOPURINOL [Concomitant]
     Active Substance: ALLOPURINOL
     Indication: Product used for unknown indication
     Dosage: 100 MG, QD
     Route: 065
  25. BISOPROLOL FUMARATE [Concomitant]
     Active Substance: BISOPROLOL FUMARATE
     Indication: Product used for unknown indication
     Dosage: 5 MG, QD
     Route: 065
  26. RAMIPRIL [Concomitant]
     Active Substance: RAMIPRIL
     Indication: Product used for unknown indication
     Dosage: 2.5 MG, TID
     Route: 065
     Dates: start: 20240710
  27. SIMVASTATIN [Concomitant]
     Active Substance: SIMVASTATIN
     Indication: Product used for unknown indication
     Dosage: 40 MG, QD
     Route: 065
  28. VENLAFAXINE HYDROCHLORIDE [Concomitant]
     Active Substance: VENLAFAXINE HYDROCHLORIDE
     Indication: Product used for unknown indication
     Dosage: 150 MG, QD
     Route: 065
  29. METHYLPREDNISOLONE [Concomitant]
     Active Substance: METHYLPREDNISOLONE
     Indication: Cutaneous T-cell lymphoma
     Dosage: UNK, PRN
     Route: 065
  30. PANTOPRAZOLE [Concomitant]
     Active Substance: PANTOPRAZOLE
     Indication: Prophylaxis
     Dosage: 20 MG, QD
     Route: 065
     Dates: start: 20250205
  31. PREDNISOLONE [Concomitant]
     Active Substance: PREDNISOLONE
     Indication: Product used for unknown indication
     Dosage: 250 MG, QD
     Route: 065
     Dates: start: 20250205, end: 20250208
  32. PREDNISOLONE [Concomitant]
     Active Substance: PREDNISOLONE
     Dosage: 250 MG, QD
     Route: 065
     Dates: start: 20250317, end: 20250319
  33. INSULIN NOS [Concomitant]
     Active Substance: INSULIN NOS
     Indication: Product used for unknown indication
     Dosage: 300, PRN (I.E)
     Route: 065
     Dates: start: 20250205

REACTIONS (2)
  - Drug eruption [Not Recovered/Not Resolved]
  - Drug eruption [Not Recovered/Not Resolved]

NARRATIVE: CASE EVENT DATE: 20240901
